FAERS Safety Report 5196886-6 (Version None)
Quarter: 2006Q4

REPORT INFORMATION
  Report Type: 
  Country: None (occurrence: None)
  Receive Date: 20061227
  Receipt Date: 20061213
  Transmission Date: 20070319
  Serious: Yes (Other)
  Sender: FDA-Public Use
  Company Number: 2006146078

PATIENT
  Age: 65 Year
  Sex: Female

DRUGS (8)
  1. TOLTERODINE TARTRATE [Suspect]
     Dosage: 4 MG (1D), ORAL
     Route: 048
  2. LEVOTOMIN (LEVOMEPROMAZINE MALEATE) [Concomitant]
  3. SYMMETREL [Concomitant]
  4. LORAZEPAM [Concomitant]
  5. AMLODIPINE [Concomitant]
  6. ACTOS [Concomitant]
  7. SENNOSIDES (SENNOSIDE A+B) [Concomitant]
  8. HERBAL PREPARATION (HERBAL PREPARATION) [Concomitant]

REACTIONS (2)
  - BLOOD PRESSURE DIASTOLIC INCREASED [None]
  - HYPERTENSION [None]
